FAERS Safety Report 6868436-7 (Version None)
Quarter: 2010Q3

REPORT INFORMATION
  Report Type: 
  Country: None (occurrence: None)
  Receive Date: 20100722
  Receipt Date: 20080527
  Transmission Date: 20110219
  Serious: No
  Sender: FDA-Public Use
  Company Number: US-PFIZER INC-2008046240

PATIENT
  Sex: Female
  Weight: 50.909 kg

DRUGS (3)
  1. CHANTIX [Suspect]
     Indication: SMOKING CESSATION THERAPY
     Dates: start: 20080523
  2. SYNTHROID [Concomitant]
  3. GLUCOPHAGE [Concomitant]

REACTIONS (3)
  - DEHYDRATION [None]
  - DRY MOUTH [None]
  - INSOMNIA [None]
